FAERS Safety Report 4982119-X (Version None)
Quarter: 2006Q2

REPORT INFORMATION
  Report Type: 
  Country: None (occurrence: None)
  Receive Date: 20060419
  Receipt Date: 20060330
  Transmission Date: 20061013
  Serious: Yes (Death, Hospitalization)
  Sender: FDA-Public Use
  Company Number: US200602005103

PATIENT
  Age: 53 Year
  Sex: Male

DRUGS (13)
  1. GEMCITABINE HYDROCHLORIDE (GEMCITABINE HYDROCHLORIDE) VIAL [Suspect]
     Indication: NON-SMALL CELL LUNG CANCER
     Dosage: 1710  MG, OTHER, INTRAVENOUS
     Route: 042
     Dates: start: 20050713, end: 20060213
  2. SOTALOL HCL [Concomitant]
  3. DILTIAZEM [Concomitant]
  4. LASIX [Concomitant]
  5. HYDROCHLOROTHIAZIDE [Concomitant]
  6. POTASSIUM [Concomitant]
  7. PRILOSEC [Concomitant]
  8. COUMADIN [Concomitant]
  9. TESSALON [Concomitant]
  10. ALBUTEROL [Concomitant]
  11. VICODIN [Concomitant]
  12. CYPROHEPTADINE HCL [Concomitant]
  13. DIFLUCAN [Concomitant]

REACTIONS (11)
  - ASTHENIA [None]
  - CHOLESTASIS [None]
  - DYSPNOEA [None]
  - EPISTAXIS [None]
  - GENERAL PHYSICAL HEALTH DETERIORATION [None]
  - HAEMOPTYSIS [None]
  - HEPATIC STEATOSIS [None]
  - LIVER FUNCTION TEST ABNORMAL [None]
  - MALIGNANT NEOPLASM PROGRESSION [None]
  - OBSTRUCTION [None]
  - OEDEMA PERIPHERAL [None]
